FAERS Safety Report 8173352-7 (Version None)
Quarter: 2012Q1

REPORT INFORMATION
  Report Type: 
  Country: None (occurrence: None)
  Receive Date: 20120229
  Receipt Date: 20120221
  Transmission Date: 20120608
  Serious: Yes (Hospitalization, Other)
  Sender: FDA-Public Use
  Company Number: GB-JNJFOC-20120107253

PATIENT
  Sex: Male

DRUGS (1)
  1. XEPLION [Suspect]
     Indication: SCHIZOPHRENIA, PARANOID TYPE
     Route: 030
     Dates: start: 20110801, end: 20120201

REACTIONS (5)
  - ANXIETY [None]
  - INSOMNIA [None]
  - TREMOR [None]
  - RESTLESSNESS [None]
  - HYPERHIDROSIS [None]
